FAERS Safety Report 6304756-2 (Version None)
Quarter: 2009Q3

REPORT INFORMATION
  Report Type: 
  Country: None (occurrence: None)
  Receive Date: 20090811
  Receipt Date: 20090728
  Transmission Date: 20100115
  Serious: Yes (Other)
  Sender: FDA-Public Use
  Company Number: B0587917A

PATIENT
  Sex: Male

DRUGS (4)
  1. ARTIST [Suspect]
     Indication: HYPERTENSION
     Route: 048
     Dates: start: 20080901, end: 20090401
  2. OLMETEC [Suspect]
     Indication: HYPERTENSION
     Dosage: 20MG PER DAY
     Route: 048
     Dates: start: 20090101
  3. CARDENALIN [Suspect]
     Indication: HYPERTENSION
     Dosage: 2MG PER DAY
     Route: 048
     Dates: start: 20090401
  4. MAGNESIUM ASPARTATE + POTASSIUM ASPARTATE [Concomitant]
     Dates: start: 20081101

REACTIONS (1)
  - HYPOKALAEMIA [None]
